FAERS Safety Report 25063831 (Version 1)
Quarter: 2025Q1

REPORT INFORMATION
  Report Type: Report from Study
  Country: IT (occurrence: IT)
  Receive Date: 20250311
  Receipt Date: 20250311
  Transmission Date: 20250409
  Serious: Yes (Other)
  Sender: AUROBINDO
  Company Number: IT-AUROBINDO-AUR-APL-2025-012828

PATIENT
  Age: 43 Year
  Sex: Male

DRUGS (15)
  1. CARBOPLATIN [Suspect]
     Active Substance: CARBOPLATIN
     Indication: Neuroendocrine carcinoma
     Route: 065
     Dates: start: 202003
  2. PACLITAXEL [Suspect]
     Active Substance: PACLITAXEL
     Indication: Neuroendocrine carcinoma
     Route: 065
     Dates: start: 202003
  3. ATEZOLIZUMAB [Suspect]
     Active Substance: ATEZOLIZUMAB
     Indication: Neuroendocrine carcinoma
     Route: 065
     Dates: start: 202003
  4. CERITINIB [Suspect]
     Active Substance: CERITINIB
     Indication: Anaplastic lymphoma kinase gene mutation
     Route: 065
     Dates: start: 201512, end: 201612
  5. CERITINIB [Suspect]
     Active Substance: CERITINIB
     Indication: Lung adenocarcinoma
  6. CERITINIB [Suspect]
     Active Substance: CERITINIB
     Indication: Metastases to central nervous system
  7. CERITINIB [Suspect]
     Active Substance: CERITINIB
     Indication: Metastases to bone
  8. CERITINIB [Suspect]
     Active Substance: CERITINIB
     Indication: Metastases to lymph nodes
  9. BRIGATINIB [Suspect]
     Active Substance: BRIGATINIB
     Indication: Anaplastic lymphoma kinase gene mutation
     Route: 065
     Dates: start: 201701, end: 201901
  10. BRIGATINIB [Suspect]
     Active Substance: BRIGATINIB
     Indication: Lung adenocarcinoma
  11. BRIGATINIB [Suspect]
     Active Substance: BRIGATINIB
     Indication: Metastases to central nervous system
  12. BRIGATINIB [Suspect]
     Active Substance: BRIGATINIB
     Indication: Metastases to bone
  13. BRIGATINIB [Suspect]
     Active Substance: BRIGATINIB
     Indication: Metastases to lymph nodes
  14. LORLATINIB [Suspect]
     Active Substance: LORLATINIB
     Indication: Neuroendocrine carcinoma
     Route: 065
     Dates: start: 201903
  15. BEVACIZUMAB [Suspect]
     Active Substance: BEVACIZUMAB
     Indication: Neuroendocrine carcinoma
     Route: 065
     Dates: start: 202003

REACTIONS (1)
  - Drug ineffective [Unknown]
